FAERS Safety Report 14081927 (Version 3)
Quarter: 2018Q2

REPORT INFORMATION
  Report Type: Spontaneous
  Country: US (occurrence: US)
  Receive Date: 20171013
  Receipt Date: 20180413
  Transmission Date: 20180711
  Serious: Yes (Death, Hospitalization, Other)
  Sender: FDA-Public Use
  Company Number: US-INCYTE CORPORATION-2017IN008662

PATIENT

DRUGS (5)
  1. JAKAFI [Suspect]
     Active Substance: RUXOLITINIB
     Indication: MYELOFIBROSIS
     Dosage: 5 MG, BID
     Route: 048
     Dates: start: 20131125, end: 20151120
  2. JAKAFI [Suspect]
     Active Substance: RUXOLITINIB
     Dosage: 10 MG, BID
     Route: 048
  3. JAKAFI [Suspect]
     Active Substance: RUXOLITINIB
     Dosage: 5 MG, BID
     Route: 048
     Dates: start: 20170915, end: 20171006
  4. JAKAFI [Suspect]
     Active Substance: RUXOLITINIB
     Dosage: TOOK HALF OF SOME OLD 15 MG TABLETS, UNK
     Route: 048
     Dates: start: 20170823, end: 20170915
  5. JAKAFI [Suspect]
     Active Substance: RUXOLITINIB
     Dosage: 10 MG, QD
     Route: 048

REACTIONS (9)
  - Haemoglobin decreased [Not Recovered/Not Resolved]
  - Hypotension [Unknown]
  - Platelet count decreased [Unknown]
  - Death [Fatal]
  - Pyrexia [Unknown]
  - Confusional state [Unknown]
  - Incorrect dosage administered [Recovered/Resolved]
  - Oxygen saturation decreased [Unknown]
  - White blood cell count decreased [Unknown]

NARRATIVE: CASE EVENT DATE: 20170823
